FAERS Safety Report 18532695 (Version 1)
Quarter: 2020Q4

REPORT INFORMATION
  Report Type: Other
  Country: IT (occurrence: IT)
  Receive Date: 20201123
  Receipt Date: 20201123
  Transmission Date: 20210114
  Serious: Yes (Life-Threatening)
  Sender: FDA-Public Use
  Company Number: IT-MACLEODS PHARMACEUTICALS US LTD-MAC2020029195

PATIENT

DRUGS (1)
  1. CLOPIDOGREL [Suspect]
     Active Substance: CLOPIDOGREL BISULFATE
     Indication: PRODUCT USED FOR UNKNOWN INDICATION
     Dosage: UNK
     Route: 065

REACTIONS (3)
  - Cyanosis [Recovered/Resolved]
  - Pharyngeal oedema [Recovered/Resolved]
  - Loss of consciousness [Recovered/Resolved]

NARRATIVE: CASE EVENT DATE: 20151208
